FAERS Safety Report 6512437-5 (Version None)
Quarter: 2009Q4

REPORT INFORMATION
  Report Type: 
  Country: None (occurrence: None)
  Receive Date: 20091222
  Receipt Date: 20090928
  Transmission Date: 20100525
  Serious: No
  Sender: FDA-Public Use
  Company Number: US-ASTRAZENECA-2009SE16251

PATIENT
  Age: 92 Year
  Sex: Female
  Weight: 51.7 kg

DRUGS (3)
  1. CRESTOR [Suspect]
     Indication: BLOOD CHOLESTEROL
     Route: 048
     Dates: start: 20070101
  2. CRESTOR [Suspect]
     Route: 048
  3. CRESTOR [Suspect]
     Route: 048

REACTIONS (1)
  - PAIN IN EXTREMITY [None]
